FAERS Safety Report 7194679-1 (Version None)
Quarter: 2010Q4

REPORT INFORMATION
  Report Type: 
  Country: None (occurrence: None)
  Receive Date: 20101223
  Receipt Date: 20100917
  Transmission Date: 20110411
  Serious: No
  Sender: FDA-Public Use
  Company Number: US-AMGEN-KDL439263

PATIENT

DRUGS (2)
  1. ENBREL [Suspect]
     Indication: RHEUMATOID ARTHRITIS
     Dosage: 50 MG, QWK
     Route: 058
     Dates: start: 20080226
  2. ANTIBIOTICS [Concomitant]

REACTIONS (5)
  - BLOOD SODIUM INCREASED [None]
  - BLOOD UREA INCREASED [None]
  - MYALGIA [None]
  - PNEUMONIA PRIMARY ATYPICAL [None]
  - RHEUMATOID ARTHRITIS [None]
